FAERS Safety Report 16464832 (Version 5)
Quarter: 2019Q3

REPORT INFORMATION
  Report Type: Report from Study
  Country: MX (occurrence: MX)
  Receive Date: 20190621
  Receipt Date: 20190814
  Transmission Date: 20191004
  Serious: Yes (Death, Life-Threatening, Hospitalization, Other)
  Sender: FDA-Public Use
  Company Number: MX-B.I. PHARMACEUTICALS,INC./RIDGEFIELD-2018-BI-031969

PATIENT
  Age: 68 Year
  Sex: Male
  Weight: 74 kg

DRUGS (6)
  1. OMEPRAZOL [Concomitant]
     Active Substance: OMEPRAZOLE
     Indication: PRODUCT USED FOR UNKNOWN INDICATION
     Route: 048
  2. BIBF 1120 [Suspect]
     Active Substance: NINTEDANIB
     Indication: IDIOPATHIC PULMONARY FIBROSIS
     Route: 048
     Dates: start: 20151214, end: 20180301
  3. MORFIN [MORPHINE SULFATE] [Concomitant]
     Active Substance: MORPHINE SULFATE
     Indication: PRODUCT USED FOR UNKNOWN INDICATION
     Dosage: UNIT DOSE: 10MILLIGRAM; DAILY DOSE: 30 MILLIGRAM
     Route: 048
  4. OXIGEN [Concomitant]
     Indication: PRODUCT USED FOR UNKNOWN INDICATION
     Route: 065
  5. SILDENAFIL. [Concomitant]
     Active Substance: SILDENAFIL
     Indication: PRODUCT USED FOR UNKNOWN INDICATION
     Route: 065
  6. LASILACTONE [Concomitant]
     Active Substance: FUROSEMIDE\SPIRONOLACTONE
     Indication: PRODUCT USED FOR UNKNOWN INDICATION
     Dosage: DOSE- 50/20 MILLIGRAM
     Route: 048

REACTIONS (7)
  - Idiopathic pulmonary fibrosis [Fatal]
  - Dyspnoea [Unknown]
  - Pulmonary hypertension [Not Recovered/Not Resolved]
  - Oedema peripheral [Unknown]
  - Chest pain [Unknown]
  - Pulmonary embolism [Fatal]
  - Orthopnoea [Unknown]

NARRATIVE: CASE EVENT DATE: 20180211
